FAERS Safety Report 18747471 (Version 5)
Quarter: 2021Q2

REPORT INFORMATION
  Report Type: Spontaneous
  Country: CH (occurrence: CH)
  Receive Date: 20210115
  Receipt Date: 20210423
  Transmission Date: 20210717
  Serious: Yes (Hospitalization, Other)
  Sender: FDA-Public Use
  Company Number: CH-BRISTOL-MYERS SQUIBB COMPANY-BMS-2021-001979

PATIENT
  Age: 66 Year
  Sex: Male

DRUGS (14)
  1. OPDIVO [Suspect]
     Active Substance: NIVOLUMAB
     Dosage: 240 MILLIGRAM, Q3WK (3MG/KG BODY WEIGHT) CYCLE 3
     Route: 042
     Dates: start: 20201120
  2. YERVOY [Suspect]
     Active Substance: IPILIMUMAB
     Dosage: 83 MILLIGRAM, Q3WK (1MG/KG BODY WEIGHT) CYCLE 2
     Route: 042
     Dates: start: 20201030
  3. VITAMIN D3 [Concomitant]
     Active Substance: CHOLECALCIFEROL
     Indication: PRODUCT USED FOR UNKNOWN INDICATION
     Dosage: UNK
     Route: 065
  4. OPDIVO [Suspect]
     Active Substance: NIVOLUMAB
     Dosage: CYCLE 4
     Route: 065
     Dates: start: 20210125
  5. YERVOY [Suspect]
     Active Substance: IPILIMUMAB
     Dosage: 83 MILLIGRAM, Q3WK (1MG/KG BODY WEIGHT) CYCLE 3
     Route: 042
     Dates: start: 20201120
  6. SODIUM BICARBONATE. [Concomitant]
     Active Substance: SODIUM BICARBONATE
     Indication: PRODUCT USED FOR UNKNOWN INDICATION
     Dosage: UNK
     Route: 065
  7. OPDIVO [Suspect]
     Active Substance: NIVOLUMAB
     Indication: RENAL CELL CARCINOMA
     Dosage: 240 MILLIGRAM, Q3WK (3MG/KG BODY WEIGHT) CYCLE 1
     Route: 042
     Dates: start: 20201009
  8. YERVOY [Suspect]
     Active Substance: IPILIMUMAB
     Indication: RENAL CELL CARCINOMA
     Dosage: 83 MILLIGRAM, Q3WK (1MG/KG BODY WEIGHT) CYCLE 1
     Route: 042
     Dates: start: 20201009
  9. DAFALGAN [Concomitant]
     Active Substance: ACETAMINOPHEN
     Indication: PRODUCT USED FOR UNKNOWN INDICATION
     Dosage: UNK
     Route: 065
  10. OPDIVO [Suspect]
     Active Substance: NIVOLUMAB
     Dosage: 240 MILLIGRAM, Q3WK (3MG/KG BODY WEIGHT) CYCLE 2
     Route: 042
     Dates: start: 20201030
  11. MOTILIUM [Concomitant]
     Active Substance: DOMPERIDONE
     Indication: PRODUCT USED FOR UNKNOWN INDICATION
     Dosage: UNK
     Route: 065
  12. ELIQUIS [Suspect]
     Active Substance: APIXABAN
     Indication: RENAL NEOPLASM
     Dosage: UNK
     Route: 065
  13. PANTOZOL [Concomitant]
     Active Substance: PANTOPRAZOLE SODIUM
     Indication: PRODUCT USED FOR UNKNOWN INDICATION
     Dosage: UNK
     Route: 065
  14. AMLODIPINE [Concomitant]
     Active Substance: AMLODIPINE BESYLATE
     Indication: PRODUCT USED FOR UNKNOWN INDICATION
     Dosage: UNK
     Route: 065

REACTIONS (4)
  - Metastases to central nervous system [Unknown]
  - Off label use [Unknown]
  - Cerebral haemorrhage [Not Recovered/Not Resolved]
  - Intentional product use issue [Unknown]

NARRATIVE: CASE EVENT DATE: 20201210
